FAERS Safety Report 19154236 (Version 4)
Quarter: 2022Q2

REPORT INFORMATION
  Report Type: Report from Study
  Country: CA (occurrence: CA)
  Receive Date: 20210419
  Receipt Date: 20220516
  Transmission Date: 20220721
  Serious: Yes (Life-Threatening, Hospitalization, Disabling)
  Sender: FDA-Public Use
  Company Number: CA-NOVARTISPH-NVSC2021CA083183

PATIENT
  Age: 28 Year
  Sex: Female

DRUGS (3)
  1. UNSPECIFIED INGREDIENT [Suspect]
     Active Substance: UNSPECIFIED INGREDIENT
     Indication: Product used for unknown indication
     Dosage: UNK
     Route: 065
  2. RIBOCICLIB [Suspect]
     Active Substance: RIBOCICLIB
     Indication: Breast cancer metastatic
     Dosage: 200 MG, QD (DAILY X 21 DAYS, THEN 7 DAYS)
     Route: 048
     Dates: start: 20210408, end: 20210409
  3. RIBOCICLIB [Suspect]
     Active Substance: RIBOCICLIB
     Dosage: 200 MG, QD (21 DAYS, THEN 7 DAYS)
     Route: 048
     Dates: start: 20220406, end: 20220426

REACTIONS (10)
  - Haemobilia [Recovering/Resolving]
  - Gallbladder rupture [Recovering/Resolving]
  - Cholecystitis acute [Recovered/Resolved]
  - Abdominal pain [Recovering/Resolving]
  - Arthropathy [Recovering/Resolving]
  - Weight bearing difficulty [Recovering/Resolving]
  - Arthralgia [Recovering/Resolving]
  - Chondrocalcinosis [Recovered/Resolved with Sequelae]
  - Fall [Unknown]
  - Head injury [Unknown]

NARRATIVE: CASE EVENT DATE: 20210409
